FAERS Safety Report 5327829-X (Version None)
Quarter: 2007Q2

REPORT INFORMATION
  Report Type: 
  Country: None (occurrence: None)
  Receive Date: 20070517
  Receipt Date: 20070301
  Transmission Date: 20071010
  Serious: Yes (Other)
  Sender: FDA-Public Use
  Company Number: US-JNJFOC-20070503183

PATIENT
  Age: 78 Year
  Sex: Female

DRUGS (2)
  1. ULTRAM ER [Suspect]
     Indication: BACK PAIN
     Route: 048
  2. ZOCOR [Concomitant]
     Indication: BLOOD CHOLESTEROL INCREASED
     Route: 065

REACTIONS (1)
  - MASTECTOMY [None]
